FAERS Safety Report 7476539-1 (Version None)
Quarter: 2011Q2

REPORT INFORMATION
  Report Type: 
  Country: None (occurrence: None)
  Receive Date: 20110512
  Receipt Date: 20110506
  Transmission Date: 20111010
  Serious: Yes (Hospitalization, Other)
  Sender: FDA-Public Use
  Company Number: CHPA2011US06419

PATIENT
  Sex: Female
  Weight: 83.9 kg

DRUGS (6)
  1. EXCEDRIN (MIGRAINE) [Suspect]
     Indication: MIGRAINE
     Dosage: 2-3 DF, PRN
     Route: 048
     Dates: end: 20101101
  2. OXYCODONE HCL [Suspect]
     Indication: INSOMNIA
     Dosage: 1 DF, QHS
     Route: 048
  3. EXCEDRIN (MIGRAINE) [Suspect]
     Indication: HEADACHE
     Dosage: 2-3 DF, PRN
     Route: 048
  4. EXCEDRIN TENSION HEADACHE [Suspect]
     Indication: HEADACHE
     Dosage: UNK DF, PRN
     Route: 048
  5. PHENYLEPHRINE HCL [Suspect]
     Indication: HEADACHE
     Dosage: UNK DF, PRN
     Route: 048
  6. VICODIN [Suspect]
     Indication: INSOMNIA
     Dosage: 1 DF, QHS
     Route: 048

REACTIONS (6)
  - BLOOD PRESSURE INCREASED [None]
  - CEREBRAL CYST [None]
  - CARDIAC DISORDER [None]
  - DRUG ADMINISTRATION ERROR [None]
  - MYOCARDIAL INFARCTION [None]
  - STRESS [None]
